FAERS Safety Report 18006929 (Version 1)
Quarter: 2020Q3

REPORT INFORMATION
  Report Type: Spontaneous
  Country: US (occurrence: US)
  Receive Date: 20200710
  Receipt Date: 20200710
  Transmission Date: 20201103
  Serious: No
  Sender: FDA-Public Use
  Company Number: None

PATIENT

DRUGS (3)
  1. BREO ELLIPTA [Suspect]
     Active Substance: FLUTICASONE FUROATE\VILANTEROL TRIFENATATE
  2. AZITHROMYCIN ANHYDROUS. [Suspect]
     Active Substance: AZITHROMYCIN ANHYDROUS
  3. ALBUTEROL. [Suspect]
     Active Substance: ALBUTEROL

REACTIONS (4)
  - Wrong product administered [None]
  - Incorrect product administration duration [None]
  - Drug monitoring procedure not performed [None]
  - Product dose omission issue [None]
